FAERS Safety Report 8166565-1 (Version None)
Quarter: 2012Q1

REPORT INFORMATION
  Report Type: 
  Country: None (occurrence: None)
  Receive Date: 20120227
  Receipt Date: 20111014
  Transmission Date: 20120608
  Serious: No
  Sender: FDA-Public Use
  Company Number: US-BRISTOL-MYERS SQUIBB COMPANY-16163974

PATIENT
  Sex: Male

DRUGS (2)
  1. TAXOL [Suspect]
     Indication: OESOPHAGEAL CARCINOMA
     Dosage: ONCE PER WEEK FOR 4 WEEKS
     Dates: start: 20110101, end: 20110101
  2. CARBOPLATIN [Suspect]
     Indication: OESOPHAGEAL CARCINOMA
     Dosage: ONCE PER WEEK FOR 4 WEEKS
     Dates: start: 20110101, end: 20110101

REACTIONS (2)
  - HAIR GROWTH ABNORMAL [None]
  - ALOPECIA [None]
